FAERS Safety Report 18228499 (Version 2)
Quarter: 2020Q3

REPORT INFORMATION
  Report Type: Spontaneous
  Country: IT (occurrence: IT)
  Receive Date: 20200903
  Receipt Date: 20200914
  Transmission Date: 20201103
  Serious: Yes (Other)
  Sender: FDA-Public Use
  Company Number: IT-BRACCO-2020IT03492

PATIENT
  Age: 81 Year
  Sex: Male

DRUGS (1)
  1. IOPAMIDOL [Suspect]
     Active Substance: IOPAMIDOL
     Indication: COMPUTERISED TOMOGRAM
     Dosage: 370 ML, SINGLE
     Route: 040
     Dates: start: 20200807, end: 20200807

REACTIONS (2)
  - Vein rupture [Recovering/Resolving]
  - Extravasation blood [Recovering/Resolving]

NARRATIVE: CASE EVENT DATE: 20200807
